FAERS Safety Report 7556295-9 (Version None)
Quarter: 2011Q2

REPORT INFORMATION
  Report Type: 
  Country: None (occurrence: None)
  Receive Date: 20110620
  Receipt Date: 20110617
  Transmission Date: 20111010
  Serious: No
  Sender: FDA-Public Use
  Company Number: US-PFIZER INC-2011134256

PATIENT
  Sex: Male

DRUGS (3)
  1. EFFEXOR XR [Suspect]
     Dosage: 225 MG, UNK
  2. EFFEXOR XR [Suspect]
     Dosage: 150 MG, UNK
  3. EFFEXOR XR [Suspect]
     Dosage: 75 MG, UNK

REACTIONS (1)
  - BLOOD TESTOSTERONE DECREASED [None]
